FAERS Safety Report 10277562 (Version 4)
Quarter: 2015Q1

REPORT INFORMATION
  Report Type: Spontaneous
  Country: JP (occurrence: JP)
  Receive Date: 20140703
  Receipt Date: 20150323
  Transmission Date: 20150720
  Serious: Yes (Life-Threatening, Other)
  Sender: FDA-Public Use
  Company Number: JP-ALEXION PHARMACEUTICALS INC.-A201402553

PATIENT

DRUGS (7)
  1. SOLIRIS [Suspect]
     Active Substance: ECULIZUMAB
     Dosage: 1200 MG, Q2W
     Route: 042
     Dates: start: 20140422, end: 20140826
  2. NICARDIPINE [Concomitant]
     Active Substance: NICARDIPINE
     Indication: HAEMOLYTIC URAEMIC SYNDROME
     Dosage: 40 MG, QD
     Route: 048
     Dates: start: 20140324, end: 20140325
  3. BAYASPIRIN [Concomitant]
     Active Substance: ASPIRIN
     Indication: PRODUCT USED FOR UNKNOWN INDICATION
     Dosage: UNK
     Route: 065
  4. CONIEL [Concomitant]
     Active Substance: BENIDIPINE HYDROCHLORIDE
     Indication: HAEMOLYTIC URAEMIC SYNDROME
     Dosage: 4 MG, QD
     Route: 048
     Dates: start: 20140314, end: 20140323
  5. MENCEVAX [Concomitant]
     Active Substance: MENINGOCOCCAL POLYSACCHARIDE VACCINE, GROUPS A, C, Y,W135 COMBINED
     Indication: IMMUNISATION
     Dosage: UNK
     Route: 065
     Dates: start: 20140327, end: 20140327
  6. SOLIRIS [Suspect]
     Active Substance: ECULIZUMAB
     Indication: HAEMOLYTIC URAEMIC SYNDROME
     Dosage: 900 MG, QW
     Route: 042
     Dates: start: 20140325, end: 20140415
  7. ANTIPSYCHOTIC DRUG [Concomitant]
     Indication: PRODUCT USED FOR UNKNOWN INDICATION
     Route: 065

REACTIONS (9)
  - Tremor [Unknown]
  - Sclerema [Not Recovered/Not Resolved]
  - Cerebral infarction [Not Recovered/Not Resolved]
  - Blood lactate dehydrogenase increased [Not Recovered/Not Resolved]
  - Thrombosis [Not Recovered/Not Resolved]
  - Altered state of consciousness [Not Recovered/Not Resolved]
  - Jugular vein thrombosis [Not Recovered/Not Resolved]
  - Drug ineffective [Not Recovered/Not Resolved]
  - Brain stem ischaemia [Not Recovered/Not Resolved]

NARRATIVE: CASE EVENT DATE: 201406
